FAERS Safety Report 9370365 (Version 1)
Quarter: 2013Q2

REPORT INFORMATION
  Report Type: Spontaneous
  Country: CY (occurrence: CY)
  Receive Date: 20130626
  Receipt Date: 20130626
  Transmission Date: 20140414
  Serious: Yes (Other)
  Sender: FDA-Public Use
  Company Number: PHHY2013CY063798

PATIENT
  Age: 24 Year
  Sex: Female

DRUGS (2)
  1. PAROXETINE [Suspect]
     Indication: PANIC DISORDER
     Dosage: 30 MG, DAILY
     Route: 048
  2. ZOLPIDEM [Suspect]
     Indication: INSOMNIA
     Dosage: 10 MG, UNK

REACTIONS (3)
  - Illusion [Recovered/Resolved]
  - Panic attack [Recovered/Resolved]
  - Drug interaction [Unknown]
